FAERS Safety Report 10024257 (Version 2)
Quarter: 2014Q2

REPORT INFORMATION
  Report Type: Spontaneous
  Country: US (occurrence: None)
  Receive Date: 20140318
  Receipt Date: 20140414
  Transmission Date: 20141212
  Serious: Yes (Other)
  Sender: FDA-Public Use
  Company Number: 2014P1002106

PATIENT
  Age: 17 Year
  Sex: Female

DRUGS (1)
  1. MYORISAN [Suspect]
     Indication: ACNE
     Route: 048
     Dates: start: 20140224, end: 20140306

REACTIONS (9)
  - Fatigue [None]
  - Pain [None]
  - Rectal haemorrhage [None]
  - Acne [None]
  - Lip dry [None]
  - Nasal dryness [None]
  - Chest pain [None]
  - Back pain [None]
  - Headache [None]
